FAERS Safety Report 8914564 (Version 1)
Quarter: 2012Q4

REPORT INFORMATION
  Report Type: 
  Country: ES (occurrence: ES)
  Receive Date: 20121119
  Receipt Date: 20121119
  Transmission Date: 20130627
  Serious: Yes (Other)
  Sender: FDA-Public Use
  Company Number: PHHY2012ES101818

PATIENT
  Age: 2 Year
  Sex: Female

DRUGS (1)
  1. ILARIS [Suspect]
     Indication: JUVENILE ARTHRITIS
     Dosage: 4 mg/kg, every 4 weeks
     Route: 058

REACTIONS (4)
  - Varicella [Recovered/Resolved]
  - Transaminases increased [Recovered/Resolved]
  - Juvenile idiopathic arthritis [Unknown]
  - Disease progression [Unknown]
